FAERS Safety Report 5512280-X (Version None)
Quarter: 2007Q4

REPORT INFORMATION
  Report Type: 
  Country: None (occurrence: None)
  Receive Date: 20071112
  Receipt Date: 20070924
  Transmission Date: 20080405
  Serious: No
  Sender: FDA-Public Use
  Company Number: A0681472A

PATIENT
  Age: 47 Year
  Sex: Male
  Weight: 80 kg

DRUGS (3)
  1. VERAMYST [Suspect]
     Dosage: 2SPR PER DAY
     Route: 045
     Dates: start: 20070901, end: 20070901
  2. NORTRIPTYLINE HCL [Concomitant]
     Indication: DEPRESSION
     Route: 048
  3. LOVASTATIN [Concomitant]
     Route: 048

REACTIONS (3)
  - GINGIVAL PAIN [None]
  - ORAL CANDIDIASIS [None]
  - ORAL PAIN [None]
